FAERS Safety Report 19661880 (Version 1)
Quarter: 2021Q3

REPORT INFORMATION
  Report Type: Spontaneous
  Country: US (occurrence: US)
  Receive Date: 20210805
  Receipt Date: 20210805
  Transmission Date: 20211014
  Serious: Yes (Hospitalization)
  Sender: FDA-Public Use
  Company Number: NVSC2021US170691

PATIENT
  Age: 42 Year
  Sex: Male

DRUGS (2)
  1. TAFINLAR [Suspect]
     Active Substance: DABRAFENIB MESYLATE
     Indication: METASTATIC MALIGNANT MELANOMA
     Dosage: 150 MG, BID
     Route: 048
     Dates: start: 20210614
  2. MEKINIST [Suspect]
     Active Substance: TRAMETINIB DIMETHYL SULFOXIDE
     Indication: METASTATIC MALIGNANT MELANOMA
     Dosage: 2 MG, QD
     Route: 065
     Dates: start: 20210614

REACTIONS (6)
  - Ejection fraction abnormal [Unknown]
  - Cardiomyopathy [Recovering/Resolving]
  - Confusional state [Unknown]
  - Blood pressure decreased [Unknown]
  - Blood thyroid stimulating hormone increased [Unknown]
  - Renal failure [Unknown]

NARRATIVE: CASE EVENT DATE: 20210614
